FAERS Safety Report 18878560 (Version 1)
Quarter: 2021Q1

REPORT INFORMATION
  Report Type: Spontaneous
  Country: BR (occurrence: BR)
  Receive Date: 20210211
  Receipt Date: 20210211
  Transmission Date: 20210420
  Serious: Yes (Other)
  Sender: FDA-Public Use
  Company Number: BR-GLAXOSMITHKLINE-BR2021AMR032305

PATIENT
  Age: 59 Year
  Sex: Male

DRUGS (1)
  1. VALTREX [Suspect]
     Active Substance: VALACYCLOVIR HYDROCHLORIDE
     Indication: HERPES ZOSTER
     Dosage: 500 MG
     Dates: start: 20210205

REACTIONS (5)
  - Nightmare [Unknown]
  - Loss of consciousness [Unknown]
  - Tremor [Unknown]
  - Somnolence [Unknown]
  - Hallucination [Unknown]

NARRATIVE: CASE EVENT DATE: 20210205
